FAERS Safety Report 18418138 (Version 1)
Quarter: 2020Q4

REPORT INFORMATION
  Report Type: Report from Study
  Country: FR (occurrence: FR)
  Receive Date: 20201023
  Receipt Date: 20201023
  Transmission Date: 20210114
  Serious: Yes (Hospitalization)
  Sender: FDA-Public Use
  Company Number: FR-TEVA-2020-FR-1840529

PATIENT
  Age: 34 Year
  Sex: Female

DRUGS (12)
  1. CARBOPLATINE [Concomitant]
     Active Substance: CARBOPLATIN
     Indication: TRIPLE NEGATIVE BREAST CANCER
     Dosage: DAY 1 OF FOUR 21-DAY CYCLES IN CHEMOTHERAPY SEGMENT 1
     Route: 042
     Dates: start: 20151009, end: 20151222
  2. EMEND [Concomitant]
     Active Substance: APREPITANT
     Indication: PROPHYLAXIS OF NAUSEA AND VOMITING
     Route: 048
     Dates: start: 20151009
  3. DOXORUBICINE [Suspect]
     Active Substance: DOXORUBICIN
     Indication: TRIPLE NEGATIVE BREAST CANCER
     Dosage: DAY 1 OF FOUR 14-DAY CYCLES IN CHEMOTHERAPY SEGMENT 2 (60 MG/M2)
     Route: 042
     Dates: start: 20160208, end: 20160322
  4. ABT-888 [Concomitant]
     Active Substance: VELIPARIB
     Indication: BREAST CANCER
     Dosage: BOD DAILY THROUGH CHEMOTHERAPY SEGMENT 1
     Route: 048
     Dates: start: 20151009, end: 20160202
  5. MOVICOL [Concomitant]
     Active Substance: POLYETHYLENE GLYCOL 3350\POTASSIUM CHLORIDE\SODIUM BICARBONATE\SODIUM CHLORIDE
     Indication: CONSTIPATION PROPHYLAXIS
     Route: 048
     Dates: start: 20151107
  6. CYCLOPHOSPHAMIDE. [Suspect]
     Active Substance: CYCLOPHOSPHAMIDE
     Indication: TRIPLE NEGATIVE BREAST CANCER
     Dosage: DAY 1 OF FOUR 14-DAY CYCLES IN CHEMOTHERAPY SEGMENT 2 (600 MG/M2)
     Route: 042
     Dates: start: 20160208, end: 20160322
  7. PACLITAXEL. [Concomitant]
     Active Substance: PACLITAXEL
     Indication: TRIPLE NEGATIVE BREAST CANCER
     Dosage: DAY 1 OF 12 WEEKLY CYCLES IN CHEMOTHERAPY SEGMENT 1 (80 MG/M2)
     Route: 042
     Dates: start: 20151009, end: 20160126
  8. PRIMPERAN [Concomitant]
     Active Substance: METOCLOPRAMIDE HYDROCHLORIDE
     Indication: NAUSEA
     Dosage: 30 MILLIGRAM DAILY;
     Route: 048
     Dates: start: 20151009
  9. ANAUSIN [Concomitant]
     Active Substance: METOCLOPRAMIDE HYDROCHLORIDE
     Indication: NAUSEA
     Dosage: 15 MILLIGRAM DAILY;
     Route: 048
     Dates: start: 20160208
  10. GRANOCYTE [Concomitant]
     Active Substance: LENOGRASTIM
     Indication: BLOOD DISORDER PROPHYLAXIS
     Dosage: 34 MICROMOL DAILY;
     Route: 058
     Dates: start: 20160213, end: 20160217
  11. CORTANCYL [Concomitant]
     Active Substance: PREDNISONE
     Indication: PROPHYLAXIS OF NAUSEA AND VOMITING
     Route: 048
     Dates: start: 20160208
  12. GRANOCYTE [Concomitant]
     Active Substance: LENOGRASTIM
     Dosage: 34 MICROMOL DAILY;
     Route: 058
     Dates: start: 20160226, end: 20160301

REACTIONS (3)
  - Febrile neutropenia [Recovered/Resolved]
  - Anaemia [Unknown]
  - Stomatitis [Unknown]

NARRATIVE: CASE EVENT DATE: 20160331
